FAERS Safety Report 9874574 (Version 1)
Quarter: 2014Q1

REPORT INFORMATION
  Report Type: Spontaneous
  Country: US (occurrence: US)
  Receive Date: 20140206
  Receipt Date: 20140206
  Transmission Date: 20141002
  Serious: No
  Sender: FDA-Public Use
  Company Number: US-BIOGENIDEC-2014BI011161

PATIENT
  Age: 56 Year
  Sex: Female

DRUGS (1)
  1. TYSABRI [Suspect]
     Indication: MULTIPLE SCLEROSIS
     Route: 042
     Dates: start: 20130614

REACTIONS (8)
  - Cognitive disorder [Not Recovered/Not Resolved]
  - Stress [Unknown]
  - Mental impairment [Not Recovered/Not Resolved]
  - Aphasia [Unknown]
  - Muscular weakness [Unknown]
  - Influenza like illness [Unknown]
  - Pain [Unknown]
  - Malaise [Not Recovered/Not Resolved]
